FAERS Safety Report 17401123 (Version 1)
Quarter: 2020Q1

REPORT INFORMATION
  Report Type: Spontaneous
  Country: US (occurrence: US)
  Receive Date: 20200211
  Receipt Date: 20200211
  Transmission Date: 20200409
  Serious: No
  Sender: FDA-Public Use
  Company Number: US-MIKART, LLC-2080093

PATIENT
  Age: 21 Year
  Sex: Female
  Weight: 77.11 kg

DRUGS (13)
  1. DARVOCET [Concomitant]
     Active Substance: ACETAMINOPHEN\PROPOXYPHENE HYDROCHLORIDE
     Dates: start: 2003
  2. SEROQUEL [Concomitant]
     Active Substance: QUETIAPINE FUMARATE
     Route: 048
     Dates: start: 201907
  3. LORTAB [Concomitant]
     Active Substance: ACETAMINOPHEN\HYDROCODONE BITARTRATE
     Dates: start: 2003
  4. BLACK COHOSH ROOT [Concomitant]
  5. UNSPECIFIED OTC SUPPLEMENTS AND VITAMINS [Concomitant]
  6. HYDROCODONE BITARTRATE AND ACETAMINOPHEN [Suspect]
     Active Substance: ACETAMINOPHEN\HYDROCODONE BITARTRATE
     Indication: PAIN
     Route: 048
  7. VENTOLIN/ALBUTEROL INHALER [Concomitant]
  8. ESZOPICLONE. [Concomitant]
     Active Substance: ESZOPICLONE
     Dates: start: 201910
  9. OXYCODONE AND ACETAMINOPHEN [Concomitant]
     Active Substance: ACETAMINOPHEN\OXYCODONE HYDROCHLORIDE
     Route: 048
     Dates: start: 2017
  10. XANAX [Concomitant]
     Active Substance: ALPRAZOLAM
     Route: 048
     Dates: start: 1990
  11. PREMARIN [Concomitant]
     Active Substance: ESTROGENS, CONJUGATED
     Route: 048
     Dates: start: 20010911, end: 2007
  12. EFFEXOR [Concomitant]
     Active Substance: VENLAFAXINE HYDROCHLORIDE
     Route: 048
     Dates: start: 2015
  13. SEVERAL UNSPECIFIED DEPRESSION MEDICATIONS [Concomitant]

REACTIONS (1)
  - Drug ineffective [Unknown]
